FAERS Safety Report 10461836 (Version 1)
Quarter: 2014Q3

REPORT INFORMATION
  Report Type: Spontaneous
  Country: SI (occurrence: SI)
  Receive Date: 20140918
  Receipt Date: 20140918
  Transmission Date: 20150326
  Serious: Yes (Other)
  Sender: FDA-Public Use
  Company Number: SI-TEVA-509018ISR

PATIENT
  Age: 37 Year
  Sex: Male

DRUGS (2)
  1. PIMECROLIMUS [Concomitant]
     Active Substance: PIMECROLIMUS
     Indication: PSORIATIC ARTHROPATHY
     Route: 061
  2. METHOTREXATE [Suspect]
     Active Substance: METHOTREXATE
     Indication: PSORIATIC ARTHROPATHY
     Route: 065

REACTIONS (3)
  - Insomnia [Unknown]
  - Nausea [Unknown]
  - Vomiting [Unknown]
